FAERS Safety Report 25367059 (Version 3)
Quarter: 2025Q4

REPORT INFORMATION
  Report Type: Spontaneous
  Country: US (occurrence: US)
  Receive Date: 20250528
  Receipt Date: 20251117
  Transmission Date: 20260117
  Serious: No
  Sender: BIOGEN
  Company Number: US-BIOGEN-2024BI01290683

PATIENT
  Age: 53 Year
  Sex: Male

DRUGS (2)
  1. VUMERITY [Suspect]
     Active Substance: DIROXIMEL FUMARATE
     Indication: Multiple sclerosis
     Dosage: DOSAGE TEXT:TAKE 1 CAPSULE BY MOUTH 2 TIMES A DAY FOR 7 DAYS, THEN 2 CAPSULES BY MOUTH 2 TIMES A DAY THEREAFTER 231MG CAPSULES,?ALSO REPORTED ON 01-NOV-2024
     Dates: start: 20241107, end: 20241113
  2. VUMERITY [Suspect]
     Active Substance: DIROXIMEL FUMARATE
     Dates: start: 20241114

REACTIONS (12)
  - Asthenia [Unknown]
  - Defaecation urgency [Unknown]
  - Peripheral swelling [Recovered/Resolved]
  - Feeling hot [Unknown]
  - Staphylococcal infection [Not Recovered/Not Resolved]
  - Nausea [Unknown]
  - Hot flush [Unknown]
  - Pruritus [Unknown]
  - Abdominal distension [Unknown]
  - Flatulence [Unknown]
  - Abdominal discomfort [Unknown]
  - Fall [Recovered/Resolved]

NARRATIVE: CASE EVENT DATE: 20240101
